FAERS Safety Report 17617886 (Version 1)
Quarter: 2020Q2

REPORT INFORMATION
  Report Type: Spontaneous
  Country: US (occurrence: US)
  Receive Date: 20200402
  Receipt Date: 20200402
  Transmission Date: 20200713
  Serious: Yes (Other)
  Sender: FDA-Public Use
  Company Number: US-ROCHE-2279450

PATIENT
  Age: 5 Decade
  Sex: Male

DRUGS (3)
  1. VISMODEGIB. [Suspect]
     Active Substance: VISMODEGIB
     Indication: BASAL CELL CARCINOMA
     Route: 065
  2. VISMODEGIB. [Suspect]
     Active Substance: VISMODEGIB
     Route: 065
  3. VISMODEGIB. [Suspect]
     Active Substance: VISMODEGIB
     Route: 065

REACTIONS (1)
  - Diarrhoea [Unknown]
